FAERS Safety Report 6013937-7 (Version None)
Quarter: 2008Q4

REPORT INFORMATION
  Report Type: 
  Country: None (occurrence: None)
  Receive Date: 20081219
  Receipt Date: 20081210
  Transmission Date: 20090506
  Serious: Yes (Hospitalization)
  Sender: FDA-Public Use
  Company Number: US-MERCK-0812USA03328

PATIENT
  Age: 82 Year
  Sex: Female

DRUGS (1)
  1. HYDRODIURIL [Suspect]
     Route: 048

REACTIONS (5)
  - CAROTID ARTERY ANEURYSM [None]
  - HYPERPROLACTINAEMIA [None]
  - HYPOGONADISM [None]
  - HYPONATRAEMIA [None]
  - HYPOTHYROIDISM [None]
